FAERS Safety Report 13438964 (Version 1)
Quarter: 2017Q2

REPORT INFORMATION
  Report Type: Spontaneous
  Country: US (occurrence: US)
  Receive Date: 20170413
  Receipt Date: 20170413
  Transmission Date: 20170830
  Serious: No
  Sender: FDA-Public Use
  Company Number: US-ROCHE-792218

PATIENT
  Age: 59 Year
  Sex: Female
  Weight: 42.7 kg

DRUGS (1)
  1. ROCEPHINE [Suspect]
     Active Substance: CEFTRIAXONE SODIUM
     Indication: LYME DISEASE
     Dosage: 20 WEEKS THERAPY, FORM: INJECTIONS, FREQUENCY: DAILY
     Route: 030

REACTIONS (1)
  - Toxicity to various agents [Unknown]
